FAERS Safety Report 17086012 (Version 1)
Quarter: 2019Q4

REPORT INFORMATION
  Report Type: Report from Study
  Country: US (occurrence: US)
  Receive Date: 20191128
  Receipt Date: 20191128
  Transmission Date: 20200122
  Serious: Yes (Other)
  Sender: FDA-Public Use
  Company Number: NVSC2019US050336

PATIENT
  Sex: Female

DRUGS (2)
  1. COSENTYX [Suspect]
     Active Substance: SECUKINUMAB
     Indication: PSORIATIC ARTHROPATHY
  2. COSENTYX [Suspect]
     Active Substance: SECUKINUMAB
     Indication: PSORIASIS
     Dosage: 300 MG, QMO (BATCH NUMBER WAS NOT REPORTED)
     Route: 058
     Dates: start: 20190321, end: 20191123

REACTIONS (9)
  - Impaired healing [Unknown]
  - Psoriasis [Unknown]
  - Wound [Unknown]
  - Psoriatic arthropathy [Unknown]
  - Stress [Unknown]
  - Scab [Unknown]
  - Skin hypertrophy [Unknown]
  - Migraine [Unknown]
  - Pruritus [Unknown]
